FAERS Safety Report 9349867 (Version 3)
Quarter: 2015Q3

REPORT INFORMATION
  Report Type: Spontaneous
  Country: US (occurrence: None)
  Receive Date: 20130611
  Receipt Date: 20150727
  Transmission Date: 20151125
  Serious: Yes (Other)
  Sender: FDA-Public Use
  Company Number: ADR-2013-00966

PATIENT
  Age: 49 Year
  Sex: Male

DRUGS (3)
  1. BACLOFEN INTRATHECAL [Suspect]
     Active Substance: BACLOFEN
     Indication: SPINAL PAIN
  2. HYDROMORPHONE INTRATHECAL [Suspect]
     Active Substance: HYDROMORPHONE
  3. ROXICODONE [Concomitant]
     Active Substance: OXYCODONE HYDROCHLORIDE

REACTIONS (12)
  - Hypoaesthesia [None]
  - Fall [None]
  - Device power source issue [None]
  - Medical device complication [None]
  - Swelling [None]
  - Abasia [None]
  - Pain [None]
  - Drug ineffective [None]
  - Device alarm issue [None]
  - Medical device pain [None]
  - Device allergy [None]
  - Device breakage [None]
